FAERS Safety Report 12994595 (Version 1)
Quarter: 2016Q4

REPORT INFORMATION
  Report Type: Spontaneous
  Country: IT (occurrence: IT)
  Receive Date: 20161202
  Receipt Date: 20161202
  Transmission Date: 20170207
  Serious: Yes (Hospitalization, Other)
  Sender: FDA-Public Use
  Company Number: PHHY2015IT160483

PATIENT
  Age: 10 Year
  Sex: Male
  Weight: 33 kg

DRUGS (2)
  1. TEGRETOL [Suspect]
     Active Substance: CARBAMAZEPINE
     Indication: PARTIAL SEIZURES
     Dosage: 600 MG, QD
     Route: 048
     Dates: start: 20151024, end: 20151113
  2. KEPPRA [Interacting]
     Active Substance: LEVETIRACETAM
     Indication: PRODUCT USED FOR UNKNOWN INDICATION
     Dosage: 500 MG, QD
     Route: 048
     Dates: start: 20151109, end: 20151113

REACTIONS (4)
  - Drug reaction with eosinophilia and systemic symptoms [Recovering/Resolving]
  - Rash maculo-papular [Recovering/Resolving]
  - Drug interaction [Unknown]
  - Eosinophilia [Unknown]

NARRATIVE: CASE EVENT DATE: 20151109
